FAERS Safety Report 5489709-9 (Version None)
Quarter: 2007Q4

REPORT INFORMATION
  Report Type: 
  Country: None (occurrence: None)
  Receive Date: 20071017
  Receipt Date: 20071017
  Transmission Date: 20080405
  Serious: Yes (Other)
  Sender: FDA-Public Use
  Company Number: None

PATIENT
  Sex: Female
  Weight: 48.5349 kg

DRUGS (1)
  1. LISINOPRIL [Suspect]
     Indication: HYPERTENSION
     Dosage: 10MG 1 DAILY PARENTERAL
     Route: 051
     Dates: start: 20070601

REACTIONS (2)
  - BLOOD PRESSURE INCREASED [None]
  - DIARRHOEA [None]
